FAERS Safety Report 24446886 (Version 1)
Quarter: 2024Q4

REPORT INFORMATION
  Report Type: Spontaneous
  Country: US (occurrence: US)
  Receive Date: 20241016
  Receipt Date: 20241016
  Transmission Date: 20250115
  Serious: Yes (Other)
  Sender: TEVA
  Company Number: US-TEVA-VS-3253926

PATIENT
  Age: 32 Year
  Sex: Female

DRUGS (4)
  1. HYDROXYCHLOROQUINE [Suspect]
     Active Substance: HYDROXYCHLOROQUINE
     Indication: Cutaneous lupus erythematosus
     Route: 065
  2. AZATHIOPRINE [Suspect]
     Active Substance: AZATHIOPRINE
     Indication: Juvenile idiopathic arthritis
     Route: 065
  3. PREDNISONE [Suspect]
     Active Substance: PREDNISONE
     Indication: Juvenile idiopathic arthritis
     Route: 065
  4. BELIMUMAB [Suspect]
     Active Substance: BELIMUMAB
     Indication: Cutaneous lupus erythematosus
     Route: 065

REACTIONS (3)
  - Drug ineffective [Unknown]
  - Fixed eruption [Recovered/Resolved]
  - Rash [Recovered/Resolved]
